FAERS Safety Report 23582817 (Version 1)
Quarter: 2024Q1

REPORT INFORMATION
  Report Type: Report from Study
  Country: GB (occurrence: GB)
  Receive Date: 20240301
  Receipt Date: 20240301
  Transmission Date: 20240410
  Serious: Yes (Disabling, Other)
  Sender: FDA-Public Use
  Company Number: GB-002147023-NVSC2021GB212636

PATIENT
  Age: 73 Year
  Sex: Female

DRUGS (3)
  1. ERELZI [Suspect]
     Active Substance: ETANERCEPT-SZZS
     Dosage: 50 MG
     Route: 058
     Dates: start: 20240221
  2. ERELZI [Suspect]
     Active Substance: ETANERCEPT-SZZS
     Indication: Product used for unknown indication
     Dosage: 50 MG, QW
     Route: 058
  3. ERELZI [Suspect]
     Active Substance: ETANERCEPT-SZZS
     Dosage: 50 MG, Q2W
     Route: 058

REACTIONS (6)
  - Mobility decreased [Not Recovered/Not Resolved]
  - Infected cyst [Recovering/Resolving]
  - Skin cancer [Unknown]
  - Gait disturbance [Unknown]
  - Pain [Unknown]
  - Product dose omission issue [Unknown]
